FAERS Safety Report 10778249 (Version 2)
Quarter: 2015Q1

REPORT INFORMATION
  Report Type: Report from Study
  Country: US (occurrence: US)
  Receive Date: 20150209
  Receipt Date: 20150213
  Transmission Date: 20150721
  Serious: Yes (Death)
  Sender: FDA-Public Use
  Company Number: US-EXELIXIS-CABO-15005191

PATIENT
  Age: 57 Year
  Sex: Male

DRUGS (10)
  1. MELATONIN [Concomitant]
     Active Substance: MELATONIN
  2. VITAMIN B COMPLEX [Concomitant]
     Active Substance: CYANOCOBALAMIN\DEXPANTHENOL\NIACINAMIDE\PYRIDOXINE HYDROCHLORIDE\RIBOFLAVIN 5^-PHOSPHATE SODIUM\THIAMINE HYDROCHLORIDE\VITAMIN B COMPLEX
  3. FOLIC ACID. [Concomitant]
     Active Substance: FOLIC ACID
  4. ZONEGRAN [Concomitant]
     Active Substance: ZONISAMIDE
  5. AMBIEN CR [Concomitant]
     Active Substance: ZOLPIDEM TARTRATE
  6. VIMPAT [Concomitant]
     Active Substance: LACOSAMIDE
  7. KEPPRA [Concomitant]
     Active Substance: LEVETIRACETAM
  8. METFORMIN [Concomitant]
     Active Substance: METFORMIN HYDROCHLORIDE
  9. CABOZANTINIB [Suspect]
     Active Substance: CABOZANTINIB
     Indication: BRAIN NEOPLASM MALIGNANT
     Dosage: 140 MG, QD
     Route: 048
     Dates: start: 20141209, end: 201501
  10. SIMVASTATIN. [Concomitant]
     Active Substance: SIMVASTATIN

REACTIONS (2)
  - Off label use [Unknown]
  - Malignant neoplasm progression [Fatal]

NARRATIVE: CASE EVENT DATE: 20150118
